FAERS Safety Report 15492237 (Version 2)
Quarter: 2018Q4

REPORT INFORMATION
  Report Type: Spontaneous
  Country: US (occurrence: US)
  Receive Date: 20181012
  Receipt Date: 20181123
  Transmission Date: 20190205
  Serious: No
  Sender: FDA-Public Use
  Company Number: US-ASTRAZENECA-2018SF18328

PATIENT
  Age: 25817 Day
  Sex: Male

DRUGS (1)
  1. SYMBICORT [Suspect]
     Active Substance: BUDESONIDE\FORMOTEROL FUMARATE DIHYDRATE
     Indication: ASTHMA
     Dosage: 80/ 4.5 MCG TWO INHALATIONS TWICE A DAY
     Route: 055

REACTIONS (7)
  - Feeling abnormal [Unknown]
  - Chest discomfort [Unknown]
  - Product dose omission [Unknown]
  - Intentional device misuse [Unknown]
  - Device malfunction [Unknown]
  - Body height decreased [Unknown]
  - Wrong technique in device usage process [Unknown]

NARRATIVE: CASE EVENT DATE: 20180912
